FAERS Safety Report 9288761 (Version 1)
Quarter: 2013Q2

REPORT INFORMATION
  Report Type: Report from Study
  Country: US (occurrence: US)
  Receive Date: 20130514
  Receipt Date: 20130514
  Transmission Date: 20140414
  Serious: Yes (Hospitalization)
  Sender: FDA-Public Use
  Company Number: US-ABBOTT-13P-163-1086443-00

PATIENT
  Age: 24 Year
  Sex: Female

DRUGS (1)
  1. HUMIRA [Suspect]
     Indication: CROHN^S DISEASE
     Dates: start: 2010

REACTIONS (5)
  - Incorrect dose administered [Not Recovered/Not Resolved]
  - Device malfunction [Not Recovered/Not Resolved]
  - Crohn^s disease [Unknown]
  - Crohn^s disease [Unknown]
  - Injection site haemorrhage [Not Recovered/Not Resolved]
